FAERS Safety Report 8827820 (Version 1)
Quarter: 2012Q4

REPORT INFORMATION
  Report Type: 
  Country: US (occurrence: US)
  Receive Date: 20121005
  Receipt Date: 20121005
  Transmission Date: 20130627
  Serious: No
  Sender: FDA-Public Use
  Company Number: US-VERTEX PHARMACEUTICAL INC.-2012-021382

PATIENT
  Age: 54 Year
  Sex: Female
  Weight: 83 kg

DRUGS (4)
  1. INCIVEK [Suspect]
     Indication: HEPATITIS C
     Dosage: 750 mg, tid
     Route: 048
     Dates: start: 20120831
  2. PEGASYS [Suspect]
     Indication: HEPATITIS C
     Dosage: 180 ?g, WEEKLY
     Route: 058
     Dates: start: 20120831
  3. RIBAVIRIN [Suspect]
     Indication: HEPATITIS C
     Dosage: UNK, bid
     Dates: start: 20120831
  4. XANAX [Concomitant]
     Indication: ANXIETY
     Dosage: 025 mg, UNK
     Route: 048

REACTIONS (8)
  - Drug dose omission [Recovered/Resolved]
  - Sinus headache [Recovered/Resolved]
  - Chills [Recovered/Resolved]
  - Hyperhidrosis [Recovered/Resolved]
  - Feeling hot [Recovered/Resolved]
  - Diarrhoea [Not Recovered/Not Resolved]
  - Pruritus [Not Recovered/Not Resolved]
  - Nausea [Recovered/Resolved]
